FAERS Safety Report 4424443-5 (Version None)
Quarter: 2004Q3

REPORT INFORMATION
  Report Type: 
  Country: None (occurrence: None)
  Receive Date: 20040812
  Receipt Date: 20040803
  Transmission Date: 20050211
  Serious: Yes (Death, Other)
  Sender: FDA-Public Use
  Company Number: IT-BRISTOL-MYERS SQUIBB COMPANY-12665774

PATIENT
  Age: 60 Year
  Sex: Female

DRUGS (1)
  1. HYDROXYUREA [Suspect]
     Indication: MYELOID LEUKAEMIA

REACTIONS (3)
  - BACTERIAL SEPSIS [None]
  - NEUTROPENIA [None]
  - THROMBOCYTOPENIA [None]
